FAERS Safety Report 4325706-4 (Version None)
Quarter: 2004Q1

REPORT INFORMATION
  Report Type: 
  Country: None (occurrence: None)
  Receive Date: 20040329
  Receipt Date: 20040319
  Transmission Date: 20041129
  Serious: Yes (Death, Hospitalization)
  Sender: FDA-Public Use
  Company Number: US-BRISTOL-MYERS SQUIBB COMPANY-12537692

PATIENT
  Age: 61 Year
  Sex: Female
  Weight: 109 kg

DRUGS (19)
  1. CYTOXAN [Suspect]
     Dates: end: 20021201
  2. TRACLEER [Suspect]
     Indication: PULMONARY HYPERTENSION
     Dosage: FROM JUN02-02AUG02: 62.5 MG BID
     Dates: start: 20020802, end: 20021212
  3. COUMADIN [Concomitant]
  4. LASIX [Concomitant]
  5. ZAROXOLYN [Concomitant]
  6. POTASSIUM [Concomitant]
  7. REMERON [Concomitant]
  8. XANAX [Concomitant]
  9. TRIMETHOPRIM [Concomitant]
  10. SULPHAMETHOXAZOLE [Concomitant]
  11. CORTICOSTEROID [Concomitant]
  12. LEVAQUIN [Concomitant]
  13. BACTRIM [Concomitant]
  14. PRILOSEC [Concomitant]
  15. FLUDROCORTISONE ACETATE [Concomitant]
  16. PREDNISONE [Concomitant]
  17. MIACALCIN [Concomitant]
  18. CALCIUM [Concomitant]
  19. VITAMIN D [Concomitant]

REACTIONS (8)
  - ASCITES [None]
  - DEATH [None]
  - EPISTAXIS [None]
  - HAEMATOTOXICITY [None]
  - HAEMOPTYSIS [None]
  - OEDEMA PERIPHERAL [None]
  - PNEUMONIA LEGIONELLA [None]
  - PULMONARY FIBROSIS [None]
